FAERS Safety Report 26160540 (Version 1)
Quarter: 2025Q4

REPORT INFORMATION
  Report Type: Other
  Country: EU (occurrence: EU)
  Receive Date: 20251216
  Receipt Date: 20251216
  Transmission Date: 20260117
  Serious: Yes (Hospitalization)
  Sender: ZYDUS PHARM
  Company Number: None

PATIENT

DRUGS (3)
  1. AMIODARONE [Suspect]
     Active Substance: AMIODARONE
     Indication: Atrial fibrillation
     Dosage: 200 MILLIGRAM EVERY 24 HRS
     Route: 048
     Dates: start: 20251101, end: 20251112
  2. BISOPROLOL [Suspect]
     Active Substance: BISOPROLOL
     Indication: Atrial fibrillation
     Dosage: 2.5 MILLIGRAM EVERY 12 HRS
     Route: 048
     Dates: start: 20251101, end: 20251112
  3. FUROSEMIDE [Suspect]
     Active Substance: FUROSEMIDE
     Indication: Atrial fibrillation
     Dosage: 80 MILLIGRAM, QD
     Route: 048
     Dates: start: 20251101, end: 20251112

REACTIONS (2)
  - Erythema [Unknown]
  - Palmar erythema [Unknown]

NARRATIVE: CASE EVENT DATE: 20251109
